FAERS Safety Report 5046598-4 (Version None)
Quarter: 2006Q2

REPORT INFORMATION
  Report Type: 
  Country: None (occurrence: None)
  Receive Date: 20060630
  Receipt Date: 20060616
  Transmission Date: 20061013
  Serious: Yes (Hospitalization)
  Sender: FDA-Public Use
  Company Number: SGB1-2005-00489

PATIENT
  Age: 65 Year
  Sex: Male

DRUGS (19)
  1. LANTHANUM CARBONATE (LANTHANUM CARBONATE) TABLET CHEWABLE [Suspect]
     Indication: HYPERPHOSPHATAEMIA
     Dosage: SEE IMAGE
     Dates: start: 20050308, end: 20050418
  2. LANTHANUM CARBONATE (LANTHANUM CARBONATE) TABLET CHEWABLE [Suspect]
     Indication: HYPERPHOSPHATAEMIA
     Dosage: SEE IMAGE
     Dates: start: 20050419, end: 20051006
  3. LANTHANUM CARBONATE (LANTHANUM CARBONATE) TABLET CHEWABLE [Suspect]
     Indication: HYPERPHOSPHATAEMIA
     Dosage: SEE IMAGE
     Dates: start: 20051101
  4. FAMOTIDINE [Concomitant]
  5. ALFAROL (ALFACALCIDOL) [Concomitant]
  6. NOVOLIN 30R /00030505/ (INSULIN INJECTION, BIPHASIC) [Concomitant]
  7. ISOSORBIDE MONONITRATE [Concomitant]
  8. VALSARTAN [Concomitant]
  9. HEPARIN [Concomitant]
  10. STREPTOCOCCUS FAECALIS (STREPTOCOCCUS FAECALIS) [Concomitant]
  11. ASPIRIN [Concomitant]
  12. TICLOPIDINE HCL [Concomitant]
  13. NOVOLIN R [Concomitant]
  14. COCARBOXYLASE (COCARBOXYLASE) [Concomitant]
  15. FLAVITAN (FLAVINE ADENINE DINUCLEOTIDE) [Concomitant]
  16. PYRIDOXINE HCL [Concomitant]
  17. VITAMIN C /00008001/ (ASCORBIC ACID) [Concomitant]
  18. KIDMIN /01370901/ (AMINO ACIDS NOS) [Concomitant]
  19. OMEPRAZOLE [Concomitant]

REACTIONS (5)
  - ABDOMINAL PAIN [None]
  - ANAEMIA [None]
  - COLON ADENOMA [None]
  - DIARRHOEA [None]
  - HAEMATOCHEZIA [None]
